FAERS Safety Report 4371067-4 (Version None)
Quarter: 2004Q2

REPORT INFORMATION
  Report Type: 
  Country: None (occurrence: None)
  Receive Date: 20040601
  Receipt Date: 20040513
  Transmission Date: 20050107
  Serious: Yes (Hospitalization, Other)
  Sender: FDA-Public Use
  Company Number: 2004US002080

PATIENT
  Age: 61 Year
  Sex: Male
  Weight: 69.4 kg

DRUGS (6)
  1. ALOXI [Suspect]
     Indication: PROPHYLAXIS OF NAUSEA AND VOMITING
     Dosage: 0.25 MG , SINGLE, INTRAVENOUS
     Route: 042
     Dates: start: 20040412, end: 20040412
  2. ASPIRIN [Concomitant]
  3. DEXAMETHASONE [Concomitant]
  4. SODIUM CHLORIDE [Concomitant]
  5. CARBOPLATIN [Concomitant]
  6. ETOPOSIDE [Concomitant]

REACTIONS (21)
  - AORTIC ATHEROSCLEROSIS [None]
  - CARDIAC VALVE DISEASE [None]
  - CARDIOMYOPATHY [None]
  - CEREBRAL ARTERY EMBOLISM [None]
  - CEREBRAL ATROPHY [None]
  - CEREBRAL INFARCTION [None]
  - CEREBRAL ISCHAEMIA [None]
  - DISORIENTATION [None]
  - EJECTION FRACTION DECREASED [None]
  - GRAND MAL CONVULSION [None]
  - HAEMATOCRIT DECREASED [None]
  - MEAN CELL HAEMOGLOBIN INCREASED [None]
  - MEAN CELL VOLUME INCREASED [None]
  - NERVOUS SYSTEM DISORDER [None]
  - NUCLEAR MAGNETIC RESONANCE IMAGING BRAIN ABNORMAL [None]
  - POSTICTAL STATE [None]
  - RED BLOOD CELL COUNT DECREASED [None]
  - SPEECH DISORDER [None]
  - TINNITUS [None]
  - VENTRICULAR HYPOKINESIA [None]
  - VISUAL DISTURBANCE [None]
